FAERS Safety Report 5017376-7 (Version None)
Quarter: 2006Q2

REPORT INFORMATION
  Report Type: 
  Country: None (occurrence: None)
  Receive Date: 20060601
  Receipt Date: 20060601
  Transmission Date: 20061013
  Serious: No
  Sender: FDA-Public Use
  Company Number: None

PATIENT
  Age: 76 Year
  Sex: Male
  Weight: 123.3784 kg

DRUGS (1)
  1. PACERONE [Suspect]
     Indication: ATRIAL FIBRILLATION
     Dosage: 200 MG  DAILY  PO
     Route: 048

REACTIONS (1)
  - CORNEAL DEPOSITS [None]
